FAERS Safety Report 6146019-4 (Version None)
Quarter: 2009Q2

REPORT INFORMATION
  Report Type: 
  Country: None (occurrence: None)
  Receive Date: 20090403
  Receipt Date: 20090326
  Transmission Date: 20091009
  Serious: Yes (Hospitalization)
  Sender: FDA-Public Use
  Company Number: ADE2009-0510

PATIENT
  Age: 56 Year
  Sex: Male

DRUGS (7)
  1. SIMVASTATIN [Suspect]
     Indication: MYOCARDIAL ISCHAEMIA
     Dosage: 40MG - DAILY - ORAL
     Route: 048
  2. ADENOSINE [Suspect]
     Indication: SUPRAVENTRICULAR TACHYCARDIA
     Dosage: IV
     Route: 042
  3. AMLODIPINE [Concomitant]
  4. ASPIRIN [Concomitant]
  5. CEFTRIAXONE [Concomitant]
  6. FERROUS SULFATE TAB [Concomitant]
  7. LANSOPRAZOLE [Concomitant]

REACTIONS (9)
  - ASTHENIA [None]
  - DISEASE COMPLICATION [None]
  - INFECTION [None]
  - LIVER FUNCTION TEST ABNORMAL [None]
  - MOVEMENT DISORDER [None]
  - MYOSITIS [None]
  - PERICARDIAL EFFUSION [None]
  - PLEURAL EFFUSION [None]
  - PULMONARY EMBOLISM [None]
